FAERS Safety Report 22273258 (Version 1)
Quarter: 2023Q2

REPORT INFORMATION
  Report Type: Spontaneous
  Country: GB (occurrence: GB)
  Receive Date: 20230502
  Receipt Date: 20230502
  Transmission Date: 20230721
  Serious: Yes (Hospitalization, Disabling, Other)
  Sender: FDA-Public Use
  Company Number: GB-MHRA-MED-202304181611566890-NPCRM

PATIENT
  Age: 14 Year
  Sex: Male
  Weight: 77 kg

DRUGS (2)
  1. TOPIRAMATE [Suspect]
     Active Substance: TOPIRAMATE
     Indication: Idiopathic intracranial hypertension
     Dosage: 25MG AM, 50MG PM ; ;
     Route: 065
     Dates: start: 20230313, end: 20230412
  2. IBUPROFEN [Concomitant]
     Active Substance: IBUPROFEN
     Indication: Idiopathic intracranial hypertension
     Dosage: UNK
     Route: 065
     Dates: start: 20221201, end: 20230412

REACTIONS (1)
  - Tubulointerstitial nephritis [Recovering/Resolving]

NARRATIVE: CASE EVENT DATE: 20230412
